FAERS Safety Report 10355381 (Version 1)
Quarter: 2014Q3

REPORT INFORMATION
  Report Type: Spontaneous
  Country: US (occurrence: US)
  Receive Date: 20140731
  Receipt Date: 20140731
  Transmission Date: 20150326
  Serious: No
  Sender: FDA-Public Use
  Company Number: US-TARO-2013P1010839

PATIENT
  Sex: Female

DRUGS (2)
  1. FLUOCINONIDE CREAM USP 0.05% [Suspect]
     Active Substance: FLUOCINONIDE
     Dosage: 1X
     Route: 047
  2. INHALER [Concomitant]
     Active Substance: UNSPECIFIED INGREDIENT
     Dosage: PRN

REACTIONS (3)
  - Eye pain [Recovering/Resolving]
  - Accidental exposure to product [Recovered/Resolved]
  - Eye irritation [Recovering/Resolving]
